FAERS Safety Report 12461453 (Version 15)
Quarter: 2019Q4

REPORT INFORMATION
  Report Type: Report from Study
  Country: FR (occurrence: FR)
  Receive Date: 20160613
  Receipt Date: 20191122
  Transmission Date: 20200122
  Serious: Yes (Hospitalization, Other)
  Sender: FDA-Public Use
  Company Number: PHHY2016FR080691

PATIENT
  Age: 66 Year
  Sex: Female
  Weight: 45 kg

DRUGS (3)
  1. AFINITOR [Suspect]
     Active Substance: EVEROLIMUS
     Dosage: 10 MG, QD
     Route: 065
     Dates: start: 20161213
  2. SANDOSTATIN [Suspect]
     Active Substance: OCTREOTIDE ACETATE
     Indication: PRODUCT USED FOR UNKNOWN INDICATION
     Dosage: UNK
     Route: 065
  3. AFINITOR [Suspect]
     Active Substance: EVEROLIMUS
     Indication: PANCREATIC NEUROENDOCRINE TUMOUR METASTATIC
     Dosage: 10 MG, QD
     Route: 065
     Dates: start: 20130801, end: 20160712

REACTIONS (12)
  - Portal hypertension [Unknown]
  - Gastric varices [Unknown]
  - Varices oesophageal [Unknown]
  - Back pain [Recovered/Resolved]
  - Abdominal pain upper [Recovered/Resolved]
  - Iron deficiency anaemia [Unknown]
  - Collateral circulation [Unknown]
  - Pyrexia [Unknown]
  - Pneumobilia [Unknown]
  - Malignant neoplasm progression [Unknown]
  - Melaena [Unknown]
  - Device occlusion [Unknown]

NARRATIVE: CASE EVENT DATE: 20151114
